FAERS Safety Report 4887702-8 (Version None)
Quarter: 2006Q1

REPORT INFORMATION
  Report Type: 
  Country: None (occurrence: None)
  Receive Date: 20060118
  Receipt Date: 20060109
  Transmission Date: 20060701
  Serious: Yes (Life-Threatening)
  Sender: FDA-Public Use
  Company Number: 028-20785-06010268

PATIENT
  Age: 66 Year
  Sex: Female

DRUGS (13)
  1. THALOMID [Suspect]
     Indication: MULTIPLE MYELOMA
     Dosage: SEE IMAGE
     Route: 048
     Dates: start: 20011228, end: 20020101
  2. THALOMID [Suspect]
     Indication: MULTIPLE MYELOMA
     Dosage: SEE IMAGE
     Route: 048
     Dates: start: 20020101, end: 20051201
  3. THALOMID [Suspect]
  4. THALOMID [Suspect]
  5. THALOMID [Suspect]
  6. THALOMID [Suspect]
  7. THALOMID [Suspect]
  8. THALOMID [Suspect]
  9. THALOMID [Suspect]
  10. THALOMID [Suspect]
  11. THALOMID [Suspect]
  12. THALOMID [Suspect]
  13. PAMIDRONATE DISODIUM [Concomitant]

REACTIONS (2)
  - CORONARY ARTERY DISEASE [None]
  - MYOCARDIAL INFARCTION [None]
